FAERS Safety Report 8605750-9 (Version None)
Quarter: 2012Q3

REPORT INFORMATION
  Report Type: 
  Country: None (occurrence: None)
  Receive Date: 20120820
  Receipt Date: 20120813
  Transmission Date: 20120928
  Serious: Yes (Hospitalization)
  Sender: FDA-Public Use
  Company Number: US-TEVA-354152USA

PATIENT
  Age: 78 Year
  Sex: Female

DRUGS (2)
  1. CALCIUM GLUCONATE [Suspect]
     Indication: HYPOCALCAEMIA
     Dosage: SLOW INFUSION
     Route: 041
  2. CALCIUM [Concomitant]
     Route: 048

REACTIONS (1)
  - HYPERPHOSPHATAEMIA [None]
